FAERS Safety Report 23562044 (Version 1)
Quarter: 2024Q1

REPORT INFORMATION
  Report Type: Spontaneous
  Country: ES (occurrence: ES)
  Receive Date: 20240226
  Receipt Date: 20240226
  Transmission Date: 20240410
  Serious: Yes (Other)
  Sender: FDA-Public Use
  Company Number: ES-AMGEN-ESPSP2024022153

PATIENT
  Age: 71 Year
  Sex: Female

DRUGS (4)
  1. ADALIMUMAB [Suspect]
     Active Substance: ADALIMUMAB\ISOPROPYL ALCOHOL
     Indication: Psoriasis
     Dosage: UNKNOWN
     Route: 058
  2. OTEZLA [Suspect]
     Active Substance: APREMILAST
     Indication: Psoriasis
     Dosage: UNKNOWN
     Route: 065
  3. RISANKIZUMAB [Concomitant]
     Active Substance: RISANKIZUMAB
     Indication: Product used for unknown indication
     Dosage: UNK
  4. IXEKIZUMAB [Concomitant]
     Active Substance: IXEKIZUMAB
     Indication: Product used for unknown indication
     Dosage: UNK

REACTIONS (4)
  - Osteoarthritis [Unknown]
  - Skin haemorrhage [Recovering/Resolving]
  - Drug ineffective [Unknown]
  - Pruritus [Not Recovered/Not Resolved]
